FAERS Safety Report 12607192 (Version 1)
Quarter: 2016Q3

REPORT INFORMATION
  Report Type: Spontaneous
  Country: DE (occurrence: DE)
  Receive Date: 20160729
  Receipt Date: 20160729
  Transmission Date: 20161109
  Serious: Yes (Hospitalization, Other)
  Sender: FDA-Public Use
  Company Number: DE-TEVA-586177GER

PATIENT
  Age: 49 Year
  Sex: Female

DRUGS (5)
  1. MAGNESIUM [Concomitant]
     Active Substance: MAGNESIUM
     Indication: ABORTION THREATENED
     Dosage: 300 MILLIGRAM DAILY;
     Route: 048
     Dates: start: 20151102, end: 20160316
  2. CLEXANE [Concomitant]
     Active Substance: ENOXAPARIN SODIUM
     Dosage: 40 MILLIGRAM DAILY;
     Dates: start: 20151216, end: 20160314
  3. TARDYFERON [Concomitant]
     Active Substance: FERROUS SULFATE
     Indication: ANAEMIA
     Route: 048
     Dates: start: 20160114, end: 20160314
  4. TRISENOX [Suspect]
     Active Substance: ARSENIC TRIOXIDE
     Route: 065
     Dates: end: 201503
  5. BRYOPHYLLUM [Concomitant]
     Indication: ABORTION THREATENED
     Dosage: ONE KNIFE TIP
     Route: 048
     Dates: start: 20151102, end: 20160316

REACTIONS (4)
  - Haemorrhage [Unknown]
  - Maternal exposure before pregnancy [Unknown]
  - Abortion threatened [Unknown]
  - Caesarean section [Recovered/Resolved]

NARRATIVE: CASE EVENT DATE: 2015
